FAERS Safety Report 14479021 (Version 1)
Quarter: 2018Q1

REPORT INFORMATION
  Report Type: Spontaneous
  Country: US (occurrence: US)
  Receive Date: 20180202
  Receipt Date: 20180202
  Transmission Date: 20180509
  Serious: Yes (Other)
  Sender: FDA-Public Use
  Company Number: US-009507513-1801USA010060

PATIENT
  Age: 61 Year
  Sex: Female
  Weight: 68 kg

DRUGS (3)
  1. ZOCOR [Suspect]
     Active Substance: SIMVASTATIN
     Dosage: UNK
     Dates: end: 20171218
  2. PANTOPRAZOLE SODIUM. [Suspect]
     Active Substance: PANTOPRAZOLE SODIUM
     Indication: GASTROOESOPHAGEAL REFLUX DISEASE
     Dosage: 40 MG, 1X/DAY
     Route: 048
  3. PANTOPRAZOLE SODIUM. [Suspect]
     Active Substance: PANTOPRAZOLE SODIUM
     Dosage: 40 MG, 1X/DAY
     Route: 048
     Dates: start: 2017

REACTIONS (6)
  - Dry skin [Unknown]
  - Pruritus [Unknown]
  - Arthralgia [Recovering/Resolving]
  - Lyme disease [Unknown]
  - Rash [Recovered/Resolved]
  - Arthropod bite [Unknown]

NARRATIVE: CASE EVENT DATE: 201712
